FAERS Safety Report 13639426 (Version 1)
Quarter: 2017Q2

REPORT INFORMATION
  Report Type: Spontaneous
  Country: US (occurrence: US)
  Receive Date: 20170609
  Receipt Date: 20170609
  Transmission Date: 20170830
  Serious: No
  Sender: FDA-Public Use
  Company Number: US-ROCHE-1466849

PATIENT
  Sex: Female

DRUGS (4)
  1. KLONOPIN [Suspect]
     Active Substance: CLONAZEPAM
     Indication: INSOMNIA
  2. PRAVASTATIN. [Concomitant]
     Active Substance: PRAVASTATIN
     Indication: BLOOD CHOLESTEROL
  3. BYSTOLIC [Concomitant]
     Active Substance: NEBIVOLOL HYDROCHLORIDE
     Indication: HYPERTENSION
  4. KLONOPIN [Suspect]
     Active Substance: CLONAZEPAM
     Indication: ANXIETY
     Route: 065

REACTIONS (2)
  - Insomnia [Not Recovered/Not Resolved]
  - Anxiety [Unknown]
